FAERS Safety Report 5385084-9 (Version None)
Quarter: 2007Q3

REPORT INFORMATION
  Report Type: 
  Country: None (occurrence: None)
  Receive Date: 20070709
  Receipt Date: 20070621
  Transmission Date: 20080115
  Serious: Yes (Hospitalization)
  Sender: FDA-Public Use
  Company Number: 8025162

PATIENT
  Age: 45 Year
  Sex: Female

DRUGS (7)
  1. KEPPRA [Suspect]
     Indication: EPILEPSY
     Dosage: 500 MG 2/D PO
     Route: 048
     Dates: start: 20070401
  2. KEPPRA [Suspect]
     Indication: EPILEPSY
     Dosage: 1000 MG 2/D PO
     Route: 048
     Dates: end: 20070501
  3. KEPPRA [Suspect]
     Indication: EPILEPSY
     Dosage: 500 MG /D PO
     Route: 048
     Dates: start: 20070501, end: 20070601
  4. LAMICTAL [Suspect]
     Indication: EPILEPSY
     Dosage: 25 MG 2/D PO
     Route: 048
     Dates: start: 20070521, end: 20070501
  5. LAMICTAL [Suspect]
     Indication: EPILEPSY
     Dosage: 50 MG 2/D PO
     Route: 048
     Dates: start: 20070501, end: 20070530
  6. COVERSYL                                       /00790701/ [Suspect]
     Indication: HYPERTENSION
     Dosage: NI PO
     Route: 048
  7. PAROXETINE HCL [Suspect]
     Indication: DEPRESSION
     Dosage: NI PO
     Route: 048

REACTIONS (3)
  - CONDITION AGGRAVATED [None]
  - SUICIDAL IDEATION [None]
  - SYSTEMIC LUPUS ERYTHEMATOSUS [None]
